FAERS Safety Report 11399911 (Version 2)
Quarter: 2015Q4

REPORT INFORMATION
  Report Type: Report from Study
  Country: NL (occurrence: NL)
  Receive Date: 20150820
  Receipt Date: 20151207
  Transmission Date: 20160304
  Serious: Yes (Hospitalization)
  Sender: FDA-Public Use
  Company Number: NL-009507513-1508NLD007183

PATIENT
  Age: 70 Year
  Sex: Male

DRUGS (9)
  1. LANTUS [Concomitant]
     Active Substance: INSULIN GLARGINE
     Dosage: 1 TIME A DAY 1 STREGNTH 100E/ML PEN 3ML
     Route: 058
     Dates: start: 20150807
  2. JANUVIA [Suspect]
     Active Substance: SITAGLIPTIN PHOSPHATE
     Indication: TYPE 2 DIABETES MELLITUS
     Dosage: 2 TIMES A DAY 1
     Route: 048
     Dates: start: 20141203
  3. GLICLAZIDE [Concomitant]
     Active Substance: GLICLAZIDE
     Dosage: 3 TIMES A DAY 1
     Route: 048
     Dates: start: 20050101
  4. METFORMIN HYDROCHLORIDE. [Concomitant]
     Active Substance: METFORMIN HYDROCHLORIDE
     Dosage: 1 DF, TID
     Route: 048
     Dates: start: 20000101
  5. ACETAMINOPHEN. [Concomitant]
     Active Substance: ACETAMINOPHEN
     Dosage: 1 TIME A DAY 1
     Route: 065
     Dates: start: 20120101
  6. ESOMEPRAZOLE MAGNESIUM. [Concomitant]
     Active Substance: ESOMEPRAZOLE MAGNESIUM
     Dosage: 1 TIME A DAY 1
     Route: 048
     Dates: start: 20100101
  7. SIMVASTATIN. [Concomitant]
     Active Substance: SIMVASTATIN
     Dosage: 1 TIME A DAY 1
     Route: 048
     Dates: start: 20120101
  8. PERINDOPRIL ARGININE [Concomitant]
     Active Substance: PERINDOPRIL ARGININE
     Dosage: 1 TIME A DAY 1
     Route: 048
     Dates: start: 20120901
  9. ASPIRIN. [Concomitant]
     Active Substance: ASPIRIN
     Dosage: 1 TIME A DAY 1
     Route: 048
     Dates: start: 20120101

REACTIONS (3)
  - Diarrhoea [Not Recovered/Not Resolved]
  - Pancreatitis [Recovered/Resolved]
  - Flatulence [Not Recovered/Not Resolved]

NARRATIVE: CASE EVENT DATE: 20141204
